FAERS Safety Report 17444228 (Version 1)
Quarter: 2020Q1

REPORT INFORMATION
  Report Type: Spontaneous
  Country: US (occurrence: US)
  Receive Date: 20200221
  Receipt Date: 20200221
  Transmission Date: 20200409
  Serious: Yes (Hospitalization, Other)
  Sender: FDA-Public Use
  Company Number: US-GLAXOSMITHKLINE-US2020GSK030874

PATIENT
  Sex: Male

DRUGS (5)
  1. PANTOPRAZOLE [Suspect]
     Active Substance: PANTOPRAZOLE
     Indication: GASTROOESOPHAGEAL REFLUX DISEASE
     Dosage: 40 MG, QD
     Route: 065
     Dates: start: 201501, end: 201708
  2. PANTOPRAZOLE [Suspect]
     Active Substance: PANTOPRAZOLE
     Indication: HYPERCHLORHYDRIA
     Dosage: 40 MG, BID
     Route: 048
     Dates: start: 20150110, end: 20150209
  3. PANTOPRAZOLE [Suspect]
     Active Substance: PANTOPRAZOLE
     Dosage: 20 UNK
     Route: 048
     Dates: start: 20170516, end: 20170814
  4. PANTOPRAZOLE [Suspect]
     Active Substance: PANTOPRAZOLE
     Dosage: 40 MG, QD
     Route: 048
     Dates: start: 20150108, end: 20150208
  5. PREVACID [Suspect]
     Active Substance: LANSOPRAZOLE
     Indication: GASTROOESOPHAGEAL REFLUX DISEASE
     Dosage: 15 MG, QD
     Route: 065
     Dates: start: 201106, end: 201408

REACTIONS (17)
  - Diabetic nephropathy [Unknown]
  - Renal failure [Unknown]
  - Proteinuria [Unknown]
  - Dysuria [Unknown]
  - Nephrotic syndrome [Unknown]
  - Renal transplant [Unknown]
  - Haemodialysis [Unknown]
  - Acute kidney injury [Unknown]
  - Peritoneal dialysis [Unknown]
  - Nephropathy [Unknown]
  - Nephrogenic anaemia [Unknown]
  - Renal impairment [Unknown]
  - Renal colic [Unknown]
  - End stage renal disease [Unknown]
  - Renal disorder [Unknown]
  - Chronic kidney disease [Unknown]
  - Dialysis [Not Recovered/Not Resolved]
